FAERS Safety Report 8528297 (Version 6)
Quarter: 2013Q1

REPORT INFORMATION
  Report Type: Report from Study
  Country: DE (occurrence: DE)
  Receive Date: 20120424
  Receipt Date: 20130215
  Transmission Date: 20140127
  Serious: Yes (Hospitalization)
  Sender: FDA-Public Use
  Company Number: DE-ABBOTT-12P-062-0927453-00

PATIENT
  Age: 57 Year
  Sex: Female
  Weight: 82 kg

DRUGS (4)
  1. HUMIRA [Suspect]
     Indication: RHEUMATOID ARTHRITIS
     Route: 058
     Dates: start: 20070606, end: 20120917
  2. RAMIPRIL [Concomitant]
     Indication: HYPERTENSION
     Route: 048
  3. MTX [Concomitant]
     Indication: PRODUCT USED FOR UNKNOWN INDICATION
  4. RITUXIMAB [Concomitant]
     Indication: PRODUCT USED FOR UNKNOWN INDICATION
     Dates: end: 20091026

REACTIONS (4)
  - Rheumatoid arthritis [Not Recovered/Not Resolved]
  - Cholecystectomy [Unknown]
  - Drug ineffective [Unknown]
  - Drug ineffective [Unknown]
